FAERS Safety Report 9950920 (Version 1)
Quarter: 2014Q1

REPORT INFORMATION
  Report Type: Report from Study
  Country: US (occurrence: US)
  Receive Date: 20140304
  Receipt Date: 20140304
  Transmission Date: 20141002
  Serious: No
  Sender: FDA-Public Use
  Company Number: US-ABBVIE-13P-163-1067731-00

PATIENT
  Age: 40 Year
  Sex: Female

DRUGS (1)
  1. HUMIRA [Suspect]
     Indication: PSORIATIC ARTHROPATHY
     Dates: start: 2006

REACTIONS (7)
  - Frustration [Unknown]
  - Psoriatic arthropathy [Unknown]
  - Emotional disorder [Unknown]
  - Activities of daily living impaired [Unknown]
  - Pain [Unknown]
  - Fatigue [Unknown]
  - Feeling abnormal [Unknown]
